FAERS Safety Report 7128557-0 (Version None)
Quarter: 2010Q4

REPORT INFORMATION
  Report Type: 
  Country: None (occurrence: None)
  Receive Date: 20101115
  Receipt Date: 20101108
  Transmission Date: 20110411
  Serious: Yes (Death)
  Sender: FDA-Public Use
  Company Number: B0683935A

PATIENT
  Age: 8 Month
  Sex: Female

DRUGS (13)
  1. ZIDOVUDINE [Suspect]
     Indication: HIV INFECTION
  2. LAMIVUDINE [Suspect]
     Indication: HIV INFECTION
  3. LOPINAVIR AND RITONAVIR [Suspect]
     Indication: HIV INFECTION
  4. RITONAVIR [Suspect]
     Indication: HIV INFECTION
  5. HEPATITIS B VACCINE INJECTION (HEPATITIS B VACCINE) [Suspect]
  6. COTRIM [Concomitant]
  7. ISONIAZID [Concomitant]
  8. RIFAMPICIN [Concomitant]
  9. PYRAZINAMIDE [Concomitant]
  10. ETHAMBUTOL HYDROCHLORIDE [Concomitant]
  11. CIPROFLOXACIN [Concomitant]
  12. AMIKACIN [Concomitant]
  13. ETHAMBUTOL HYDROCHLORIDE [Concomitant]

REACTIONS (10)
  - ACUTE HEPATIC FAILURE [None]
  - BRAIN OEDEMA [None]
  - COAGULOPATHY [None]
  - HAEMORRHAGE [None]
  - HEPATIC CIRRHOSIS [None]
  - HEPATIC ENCEPHALOPATHY [None]
  - HEPATITIS B [None]
  - HEPATOTOXICITY [None]
  - INTERNATIONAL NORMALISED RATIO INCREASED [None]
  - LYMPHADENITIS [None]
